FAERS Safety Report 25840233 (Version 1)
Quarter: 2025Q3

REPORT INFORMATION
  Report Type: Spontaneous
  Country: EU (occurrence: EU)
  Receive Date: 20250924
  Receipt Date: 20250924
  Transmission Date: 20251021
  Serious: Yes (Hospitalization)
  Sender: CHEPLAPHARM
  Company Number: None

PATIENT
  Age: 77 Year
  Sex: Female

DRUGS (4)
  1. QUETIAPINE [Interacting]
     Active Substance: QUETIAPINE
     Route: 048
     Dates: start: 20250823, end: 20250824
  2. QUETIAPINE [Interacting]
     Active Substance: QUETIAPINE
     Route: 048
     Dates: start: 20250824
  3. OLANZAPINE [Interacting]
     Active Substance: OLANZAPINE
     Dosage: DAILY DOSE: 60 MILLIGRAM
     Route: 030
     Dates: start: 20250824, end: 20250824
  4. OLANZAPINE [Interacting]
     Active Substance: OLANZAPINE
     Route: 030
     Dates: start: 20250824

REACTIONS (3)
  - Somnolence [Recovered/Resolved]
  - Hypotension [Recovered/Resolved]
  - Wrong schedule [Recovered/Resolved]

NARRATIVE: CASE EVENT DATE: 20250824
